FAERS Safety Report 8105190-5 (Version None)
Quarter: 2012Q1

REPORT INFORMATION
  Report Type: 
  Country: None (occurrence: None)
  Receive Date: 20120201
  Receipt Date: 20120126
  Transmission Date: 20120608
  Serious: Yes (Death, Life-Threatening, Hospitalization, Other)
  Sender: FDA-Public Use
  Company Number: US-MILLENNIUM PHARMACEUTICALS, INC.-2007-00666

PATIENT

DRUGS (19)
  1. VELCADE [Suspect]
     Dosage: UNK
     Dates: end: 20090501
  2. DEXAMETHASONE [Suspect]
     Indication: MULTIPLE MYELOMA
     Dosage: 40.00 MG, UNK
     Dates: start: 20070122
  3. DOXIL [Suspect]
     Indication: MULTIPLE MYELOMA
     Dosage: 30.00 MG/M2, UNK
     Route: 042
     Dates: start: 20070308, end: 20070308
  4. MYCELEX [Concomitant]
     Indication: PRODUCT USED FOR UNKNOWN INDICATION
  5. DEXAMETHASONE [Suspect]
     Dosage: UNK
     Dates: end: 20090501
  6. ETOPOSIDE [Concomitant]
     Indication: MULTIPLE MYELOMA
     Dosage: UNK
     Dates: end: 20090501
  7. ACYCLOVIR [Concomitant]
     Indication: PRODUCT USED FOR UNKNOWN INDICATION
  8. ASPIRIN [Concomitant]
     Indication: PRODUCT USED FOR UNKNOWN INDICATION
  9. VORINOSTAT [Concomitant]
     Indication: MULTIPLE MYELOMA
     Dosage: UNK
     Dates: start: 20090101
  10. VELCADE [Suspect]
     Dates: start: 20070305, end: 20070308
  11. PRILOSEC [Concomitant]
     Indication: PRODUCT USED FOR UNKNOWN INDICATION
  12. TOPROL-XL [Concomitant]
     Indication: PRODUCT USED FOR UNKNOWN INDICATION
  13. NORVASC [Concomitant]
     Indication: PRODUCT USED FOR UNKNOWN INDICATION
  14. THALIDOMIDE [Concomitant]
     Dosage: UNK
     Dates: end: 20090501
  15. CISPLATIN [Concomitant]
     Indication: MULTIPLE MYELOMA
     Dosage: UNK
     Dates: end: 20090501
  16. VELCADE [Suspect]
     Indication: MULTIPLE MYELOMA
     Dosage: 1.30 MG/M2, UNK
     Route: 040
     Dates: start: 20070122
  17. DEXAMETHASONE [Suspect]
     Dates: start: 20070305, end: 20070308
  18. CYCLOPHOSPHAMIDE [Concomitant]
     Indication: MULTIPLE MYELOMA
     Dosage: UNK
     Dates: end: 20090501
  19. VELCADE [Suspect]

REACTIONS (3)
  - PNEUMONIA LEGIONELLA [None]
  - STREPTOCOCCAL SEPSIS [None]
  - DEATH [None]
